FAERS Safety Report 9100993 (Version 1)
Quarter: 2013Q1

REPORT INFORMATION
  Report Type: Spontaneous
  Country: GB (occurrence: GB)
  Receive Date: 20130214
  Receipt Date: 20130214
  Transmission Date: 20140127
  Serious: Yes (Life-Threatening)
  Sender: FDA-Public Use
  Company Number: GB-PFIZER INC-2013058685

PATIENT
  Age: 45 Year
  Sex: Female

DRUGS (1)
  1. CHAMPIX [Suspect]
     Indication: SMOKING CESSATION THERAPY
     Dosage: 1 MG, UNK
     Route: 048
     Dates: start: 20130115, end: 20130124

REACTIONS (5)
  - Alcohol interaction [Recovered/Resolved]
  - Paranoia [Recovered/Resolved]
  - Overdose [Recovered/Resolved]
  - Depressive symptom [Recovered/Resolved]
  - Psychotic disorder [Recovered/Resolved]
